APPROVED DRUG PRODUCT: CEFPROZIL
Active Ingredient: CEFPROZIL
Strength: 125MG/5ML
Dosage Form/Route: FOR SUSPENSION;ORAL
Application: A065381 | Product #001 | TE Code: AB
Applicant: AUROBINDO PHARMA LTD
Approved: Jan 30, 2007 | RLD: No | RS: No | Type: RX